FAERS Safety Report 16439872 (Version 1)
Quarter: 2019Q2

REPORT INFORMATION
  Report Type: Spontaneous
  Country: US (occurrence: US)
  Receive Date: 20190507
  Receipt Date: 20190507
  Transmission Date: 20190711
  Serious: Yes (Other)
  Sender: FDA-Public Use
  Company Number: None

PATIENT
  Age: 62 Year
  Sex: Female

DRUGS (18)
  1. TRAMADOL. [Concomitant]
     Active Substance: TRAMADOL
  2. CALCIUM W VIT D [Concomitant]
  3. FERROUS SULFATE. [Concomitant]
     Active Substance: FERROUS SULFATE
  4. URSODIOL. [Concomitant]
     Active Substance: URSODIOL
  5. OMEPRAZOLE. [Concomitant]
     Active Substance: OMEPRAZOLE
  6. LOSARTAN. [Concomitant]
     Active Substance: LOSARTAN
  7. LETAIRIS [Suspect]
     Active Substance: AMBRISENTAN
     Indication: PULMONARY ARTERIAL HYPERTENSION
     Route: 048
     Dates: start: 201407
  8. ATROVENT [Concomitant]
     Active Substance: IPRATROPIUM BROMIDE
  9. ATORVASTATIN [Concomitant]
     Active Substance: ATORVASTATIN
  10. LACTULOSE. [Concomitant]
     Active Substance: LACTULOSE
  11. SILDENAFIL. [Concomitant]
     Active Substance: SILDENAFIL
  12. FUROSEMIDE. [Concomitant]
     Active Substance: FUROSEMIDE
  13. PHENYTOIN. [Concomitant]
     Active Substance: PHENYTOIN
  14. CAPSAICIN TOP CREAM [Concomitant]
  15. METOPROLOL. [Concomitant]
     Active Substance: METOPROLOL
  16. POTASSIUM CHLORIDE. [Concomitant]
     Active Substance: POTASSIUM CHLORIDE
  17. NORCO [Concomitant]
     Active Substance: ACETAMINOPHEN\HYDROCODONE BITARTRATE
  18. ONSANDETRON [Concomitant]

REACTIONS (5)
  - Hypervolaemia [None]
  - Product dose omission [None]
  - Eye discharge [None]
  - Chest discomfort [None]
  - Conjunctivitis [None]

NARRATIVE: CASE EVENT DATE: 20190413
